FAERS Safety Report 4695636-7 (Version None)
Quarter: 2005Q2

REPORT INFORMATION
  Report Type: 
  Country: None (occurrence: None)
  Receive Date: 20050621
  Receipt Date: 20050603
  Transmission Date: 20051028
  Serious: Yes (Death, Hospitalization)
  Sender: FDA-Public Use
  Company Number: PHBS2005JP08080

PATIENT
  Age: 73 Year
  Sex: Male

DRUGS (1)
  1. VOLTAREN [Suspect]
     Indication: ANTIPYRESIS
     Dosage: 50 MG, ONCE/SINGLE
     Route: 054
     Dates: start: 20050601

REACTIONS (3)
  - ANAPHYLACTIC SHOCK [None]
  - CARDIO-RESPIRATORY ARREST [None]
  - HYPOTENSION [None]
